FAERS Safety Report 18348836 (Version 1)
Quarter: 2020Q4

REPORT INFORMATION
  Report Type: Spontaneous
  Country: US (occurrence: US)
  Receive Date: 20201005
  Receipt Date: 20201005
  Transmission Date: 20210114
  Serious: Yes (Hospitalization)
  Sender: FDA-Public Use
  Company Number: None

PATIENT
  Age: 51 Year
  Sex: Female

DRUGS (11)
  1. ALBUTEROL. [Concomitant]
     Active Substance: ALBUTEROL
  2. AZITHROMYCIN ANHYDROUS. [Concomitant]
     Active Substance: AZITHROMYCIN ANHYDROUS
  3. DILT-XR [Concomitant]
     Active Substance: DILTIAZEM
  4. BOTOX [Suspect]
     Active Substance: ONABOTULINUMTOXINA
     Indication: HYPERHIDROSIS
     Dosage: 100 UNITS PER AXILLA EVERY 12 WEEK  INTRADERMALLY?
     Route: 023
     Dates: start: 201805
  5. CETIRIZINE [Concomitant]
     Active Substance: CETIRIZINE HYDROCHLORIDE
  6. VIRTUSSIN [Concomitant]
  7. MONTELUKAST [Concomitant]
     Active Substance: MONTELUKAST SODIUM
  8. OMEPRAZOLE. [Concomitant]
     Active Substance: OMEPRAZOLE
  9. EPINEPHRINE. [Concomitant]
     Active Substance: EPINEPHRINE
  10. HYDROXYZ PAM [Concomitant]
     Active Substance: HYDROXYZINE PAMOATE
  11. METHYLPRED [Concomitant]
     Active Substance: METHYLPREDNISOLONE

REACTIONS (2)
  - Therapy interrupted [None]
  - Hyperhidrosis [None]

NARRATIVE: CASE EVENT DATE: 20200630
